FAERS Safety Report 23848812 (Version 1)
Quarter: 2024Q2

REPORT INFORMATION
  Report Type: Spontaneous
  Country: US (occurrence: US)
  Receive Date: 20240513
  Receipt Date: 20240513
  Transmission Date: 20240715
  Serious: Yes (Other)
  Sender: FDA-Public Use
  Company Number: US-ABBVIE-5756961

PATIENT
  Sex: Female

DRUGS (2)
  1. RESTASIS [Suspect]
     Active Substance: CYCLOSPORINE
     Indication: Dry eye
     Dosage: FORM STRENGTH: 0.5MG/ML EMULSION?START DATE TEXT: ABOUT A YEAR AND A HALF AGO
     Route: 047
  2. CORTICOSTEROID NOS [Concomitant]
     Active Substance: CORTICOSTEROID NOS
     Indication: Product used for unknown indication
     Dosage: DROPS TWICE A DAY

REACTIONS (3)
  - Punctal plug insertion [Unknown]
  - Visual impairment [Unknown]
  - Dry eye [Not Recovered/Not Resolved]
